FAERS Safety Report 6828520-0 (Version None)
Quarter: 2010Q3

REPORT INFORMATION
  Report Type: 
  Country: None (occurrence: None)
  Receive Date: 20100709
  Receipt Date: 20070213
  Transmission Date: 20110219
  Serious: No
  Sender: FDA-Public Use
  Company Number: US-PFIZER INC-2007013377

PATIENT
  Sex: Male
  Weight: 90.72 kg

DRUGS (7)
  1. CHANTIX [Suspect]
     Indication: SMOKING CESSATION THERAPY
     Dates: start: 20070128
  2. PRAVACHOL [Concomitant]
  3. ZETIA [Concomitant]
  4. ALPRAZOLAM [Concomitant]
  5. PROVIGIL [Concomitant]
  6. CELEXA [Concomitant]
  7. NEXIUM [Concomitant]
     Indication: DYSPEPSIA

REACTIONS (2)
  - DYSPEPSIA [None]
  - NAUSEA [None]
